FAERS Safety Report 10047180 (Version 2)
Quarter: 2014Q1

REPORT INFORMATION
  Report Type: Spontaneous
  Country: US (occurrence: US)
  Receive Date: 20140331
  Receipt Date: 20140331
  Transmission Date: 20141002
  Serious: No
  Sender: FDA-Public Use
  Company Number: US-MYLANLABS-2013S1017110

PATIENT
  Age: 44 Year
  Sex: Female
  Weight: 67.13 kg

DRUGS (11)
  1. FENTANYL TRANSDERMAL SYSTEM [Suspect]
     Indication: CANCER PAIN
     Dosage: Q72HR
     Route: 062
     Dates: start: 201306, end: 20131010
  2. FENTANYL TRANSDERMAL SYSTEM [Suspect]
     Indication: CANCER PAIN
     Dosage: Q48HR
     Route: 062
     Dates: start: 20131010
  3. FENTANYL TRANSDERMAL SYSTEM [Suspect]
     Indication: CANCER PAIN
     Dosage: Q72HR
     Route: 062
     Dates: start: 201306, end: 20131010
  4. OXYCODONE [Concomitant]
     Indication: PAIN
  5. ONDANSETRON [Concomitant]
     Indication: NAUSEA
  6. ATIVAN [Concomitant]
     Indication: ANXIETY
  7. GABAPENTIN [Concomitant]
     Indication: PAIN
  8. ACYCLOVIR [Concomitant]
     Indication: HERPES ZOSTER
  9. NORTRIPTYLINE [Concomitant]
     Indication: PAIN
  10. ESCITALOPRAM [Concomitant]
     Indication: DEPRESSION
  11. ESTRADIOL [Concomitant]

REACTIONS (3)
  - Drug effect decreased [Recovered/Resolved]
  - Cancer pain [Recovered/Resolved]
  - Herpes zoster [Not Recovered/Not Resolved]
